FAERS Safety Report 6237036-4 (Version None)
Quarter: 2009Q2

REPORT INFORMATION
  Report Type: 
  Country: None (occurrence: None)
  Receive Date: 20090617
  Receipt Date: 20080110
  Transmission Date: 20091009
  Serious: No
  Sender: FDA-Public Use
  Company Number: 271542

PATIENT
  Sex: Female

DRUGS (2)
  1. LEVEMIR [Suspect]
     Indication: INSULIN-REQUIRING TYPE 2 DIABETES MELLITUS
     Dosage: 40 IU, BID, SUBCUTANEOUS ; 60 IU, BID, SUBCUTANEOUS
     Route: 058
  2. GLUMETZA [Concomitant]

REACTIONS (1)
  - BLOOD GLUCOSE INCREASED [None]
